FAERS Safety Report 22345062 (Version 1)
Quarter: 2023Q2

REPORT INFORMATION
  Report Type: Spontaneous
  Country: GB (occurrence: GB)
  Receive Date: 20230519
  Receipt Date: 20230519
  Transmission Date: 20230721
  Serious: Yes (Death, Life-Threatening, Hospitalization, Other)
  Sender: FDA-Public Use
  Company Number: GB-002147023-NVSC2020GB164277

PATIENT
  Age: 48 Year
  Sex: Male
  Weight: 68 kg

DRUGS (18)
  1. FLUDARABINE [Suspect]
     Active Substance: FLUDARABINE PHOSPHATE
     Indication: Chemotherapy
     Dosage: UNK, DURATION: 3 DAYS
     Route: 065
     Dates: start: 20200515, end: 20200517
  2. FLUDARABINE [Suspect]
     Active Substance: FLUDARABINE PHOSPHATE
     Indication: Lymphodepletion
  3. CYCLOPHOSPHAMIDE [Suspect]
     Active Substance: CYCLOPHOSPHAMIDE
     Indication: Chemotherapy
     Dosage: UNK, DURATION: 3 DAYS
     Route: 065
     Dates: start: 20200515, end: 20200517
  4. CYCLOPHOSPHAMIDE [Suspect]
     Active Substance: CYCLOPHOSPHAMIDE
     Indication: Lymphodepletion
  5. ACYCLOVIR [Concomitant]
     Active Substance: ACYCLOVIR
     Indication: Antiviral prophylaxis
     Dosage: UNK, DURATION: 28 DAYS
     Route: 065
     Dates: start: 20200513, end: 20200609
  6. ALLOPURINOL [Concomitant]
     Active Substance: ALLOPURINOL
     Indication: General physical condition
     Dosage: UNK, DURATION: 29 DAYS
     Route: 065
     Dates: start: 20200512, end: 20200609
  7. CALCIUM CARBONATE [Concomitant]
     Active Substance: CALCIUM CARBONATE
     Indication: General physical condition
     Dosage: UNK, DURATION: 19 DAYS
     Route: 065
     Dates: start: 20200518, end: 20200605
  8. CHLORHEXIDINE GLUCONATE [Concomitant]
     Active Substance: CHLORHEXIDINE GLUCONATE
     Indication: General physical condition
     Dosage: UNK, DURATION: 28 DAYS
     Route: 065
     Dates: start: 20200513, end: 20200609
  9. COTRIMOXAZOLE [Concomitant]
     Active Substance: SULFAMETHOXAZOLE\TRIMETHOPRIM
     Indication: Antibiotic prophylaxis
     Dosage: UNK, DURATION: 28 DAYS
     Route: 065
     Dates: start: 20200512, end: 20200608
  10. DOMPERIDONE [Concomitant]
     Active Substance: DOMPERIDONE
     Indication: General physical condition
     Dosage: UNK, DURATION: 36 DAYS
     Route: 065
     Dates: start: 20200513, end: 20200617
  11. ENOXAPARIN [Concomitant]
     Active Substance: ENOXAPARIN
     Indication: Anticoagulant therapy
     Dosage: UNK, DURATION: 38 DAYS
     Route: 065
     Dates: start: 20200511, end: 20200617
  12. FLUCONAZOLE [Concomitant]
     Active Substance: FLUCONAZOLE
     Indication: Antifungal prophylaxis
     Dosage: UNK, DURATION: 7 DAYS
     Route: 065
     Dates: start: 20200513, end: 20200519
  13. MESNA [Concomitant]
     Active Substance: MESNA
     Indication: Adjuvant therapy
     Dosage: UNK, DURATION: 3 DAYS
     Route: 065
     Dates: start: 20200515, end: 20200517
  14. OMEPRAZOLE [Concomitant]
     Active Substance: OMEPRAZOLE
     Indication: General physical condition
     Dosage: UNK, DURATION: 28 DAYS
     Route: 065
     Dates: start: 20200513, end: 20200609
  15. ONDANSETRON [Concomitant]
     Active Substance: ONDANSETRON
     Indication: General physical condition
     Dosage: UNK, DURATION: 5 DAYS
     Route: 065
     Dates: start: 20200513, end: 20200517
  16. ACETAMINOPHEN [Concomitant]
     Active Substance: ACETAMINOPHEN
     Indication: Pyrexia
     Dosage: UNK, DURATION: 1 DAYS
     Route: 065
     Dates: start: 20200513, end: 20200513
  17. POSACONAZOLE [Concomitant]
     Active Substance: POSACONAZOLE
     Indication: Prophylaxis
     Dosage: UNK, DURATION: 18 DAYS
     Route: 065
     Dates: start: 20200523, end: 20200609
  18. TOCILIZUMAB [Concomitant]
     Active Substance: TOCILIZUMAB
     Indication: Prophylaxis
     Dosage: UNK, DURATION: 5 DAYS
     Route: 065
     Dates: start: 20200512, end: 20200516

REACTIONS (2)
  - Infection [Fatal]
  - Neutropenia [Recovered/Resolved]

NARRATIVE: CASE EVENT DATE: 20200528
